FAERS Safety Report 7117866-7 (Version None)
Quarter: 2010Q4

REPORT INFORMATION
  Report Type: 
  Country: None (occurrence: None)
  Receive Date: 20101118
  Receipt Date: 20101118
  Transmission Date: 20110411
  Serious: Yes (Other)
  Sender: FDA-Public Use
  Company Number: None

PATIENT
  Age: 73 Year
  Sex: Female

DRUGS (1)
  1. LIPITOR [Suspect]
     Indication: BLOOD CHOLESTEROL
     Dosage: TAKE 1 TABLET DAILY
     Dates: start: 20100924

REACTIONS (5)
  - DYSARTHRIA [None]
  - HYPERHIDROSIS [None]
  - HYPOAESTHESIA [None]
  - MONOPARESIS [None]
  - TREMOR [None]
